FAERS Safety Report 14941990 (Version 1)
Quarter: 2018Q2

REPORT INFORMATION
  Report Type: Spontaneous
  Country: PT (occurrence: PT)
  Receive Date: 20180527
  Receipt Date: 20180527
  Transmission Date: 20180711
  Serious: Yes (Other)
  Sender: FDA-Public Use
  Company Number: PHHY2018PT007332

PATIENT
  Sex: Female

DRUGS (1)
  1. CEFTRIAXONE. [Suspect]
     Active Substance: CEFTRIAXONE
     Indication: TONSILLITIS
     Dosage: UNK
     Route: 042

REACTIONS (3)
  - Presyncope [Recovered/Resolved]
  - Feeling hot [Recovered/Resolved]
  - Choking sensation [Recovered/Resolved]
